FAERS Safety Report 13498574 (Version 1)
Quarter: 2017Q2

REPORT INFORMATION
  Report Type: Report from Study
  Country: CO (occurrence: CO)
  Receive Date: 20170501
  Receipt Date: 20170501
  Transmission Date: 20170830
  Serious: Yes (Other)
  Sender: FDA-Public Use
  Company Number: CO-AXELLIA-001077

PATIENT

DRUGS (1)
  1. POLYMYXIN B. [Suspect]
     Active Substance: POLYMYXIN B
     Indication: PRODUCT USED FOR UNKNOWN INDICATION
     Dosage: THE DOSE USED WAS 15,000 TO 25,000 IU / KG / DAY

REACTIONS (1)
  - Neurotoxicity [Unknown]
